FAERS Safety Report 25980100 (Version 1)
Quarter: 2025Q4

REPORT INFORMATION
  Report Type: Spontaneous
  Country: US (occurrence: None)
  Receive Date: 20251030
  Receipt Date: 20251030
  Transmission Date: 20260117
  Serious: Yes (Life-Threatening)
  Sender: FDA-CTU
  Company Number: None

PATIENT
  Age: 59 Year
  Sex: Female

DRUGS (1)
  1. OCRELIZUMAB [Suspect]
     Active Substance: OCRELIZUMAB
     Indication: Multiple sclerosis
     Dosage: OTHER FREQUENCY : EVERY 6 MONTHS;?
     Route: 041
     Dates: start: 20170401, end: 20250428

REACTIONS (3)
  - Invasive lobular breast carcinoma [None]
  - Hormone receptor positive breast cancer [None]
  - Hormone receptor positive breast cancer [None]

NARRATIVE: CASE EVENT DATE: 20251013
